FAERS Safety Report 10728997 (Version 3)
Quarter: 2015Q2

REPORT INFORMATION
  Report Type: Spontaneous
  Country: US (occurrence: US)
  Receive Date: 20150122
  Receipt Date: 20150610
  Transmission Date: 20150821
  Serious: Yes (Death)
  Sender: FDA-Public Use
  Company Number: US-PFIZER INC-2015022647

PATIENT
  Age: 87 Year
  Sex: Female

DRUGS (1)
  1. XALKORI [Suspect]
     Active Substance: CRIZOTINIB
     Indication: LUNG NEOPLASM MALIGNANT
     Dosage: 500 MG, DAILY
     Dates: start: 20150108

REACTIONS (7)
  - Cerebrovascular accident [Fatal]
  - Vomiting [Unknown]
  - Paraesthesia [Unknown]
  - Pruritus [Unknown]
  - Neuropathy peripheral [Unknown]
  - Dry skin [Unknown]
  - Nausea [Unknown]

NARRATIVE: CASE EVENT DATE: 2015
